FAERS Safety Report 19609873 (Version 2)
Quarter: 2021Q3

REPORT INFORMATION
  Report Type: Spontaneous
  Country: NL (occurrence: NL)
  Receive Date: 20210726
  Receipt Date: 20210805
  Transmission Date: 20211014
  Serious: Yes (Other)
  Sender: FDA-Public Use
  Company Number: NL-MYLANLABS-2021M1044174

PATIENT
  Sex: Female
  Weight: 78 kg

DRUGS (3)
  1. ESCITALOPRAM [Suspect]
     Active Substance: ESCITALOPRAM OXALATE
     Indication: DEPRESSIVE SYMPTOM
     Dosage: 1X PER DAY 1 TABLET
     Dates: start: 20210226, end: 20210423
  2. ETHINYLESTRADIOL/LEVONORGESTREL [Concomitant]
     Active Substance: ETHINYL ESTRADIOL\LEVONORGESTREL
     Dosage: TABLET, 30/150 ?G (MICROGRAM)
  3. QUETIAPINE. [Concomitant]
     Active Substance: QUETIAPINE
     Dosage: TABLET, 12,5 MG (MILLIGRAM)

REACTIONS (3)
  - Hyperprolactinaemia [Recovered/Resolved]
  - Nausea [Recovered/Resolved]
  - Night sweats [Recovered/Resolved]
